FAERS Safety Report 20974571 (Version 9)
Quarter: 2024Q1

REPORT INFORMATION
  Report Type: Report from Study
  Country: CA (occurrence: CA)
  Receive Date: 20220617
  Receipt Date: 20240307
  Transmission Date: 20240409
  Serious: Yes (Hospitalization, Other)
  Sender: FDA-Public Use
  Company Number: CA-TAKEDA-2022TUS040182

PATIENT
  Age: 56 Year
  Sex: Female

DRUGS (4)
  1. VEDOLIZUMAB [Suspect]
     Active Substance: VEDOLIZUMAB
     Indication: Crohn^s disease
     Dosage: 300 MILLIGRAM
     Route: 042
     Dates: start: 20220527
  2. VEDOLIZUMAB [Suspect]
     Active Substance: VEDOLIZUMAB
     Indication: Crohn^s disease
     Dosage: 108 MILLIGRAM
     Route: 058
     Dates: start: 20220902
  3. BUDESONIDE [Concomitant]
     Active Substance: BUDESONIDE
     Dosage: UNK
  4. CANNABIS SATIVA SUBSP. INDICA TOP [Concomitant]
     Active Substance: CANNABIS SATIVA SUBSP. INDICA TOP
     Indication: Sleep disorder
     Dosage: UNK

REACTIONS (25)
  - Intestinal obstruction [Unknown]
  - Haematochezia [Unknown]
  - Intestinal fistula [Unknown]
  - Anal abscess [Unknown]
  - Abdominal tenderness [Unknown]
  - Aphthous ulcer [Unknown]
  - Diarrhoea [Unknown]
  - Throat irritation [Unknown]
  - Anal fistula [Unknown]
  - Weight decreased [Unknown]
  - Abdominal discomfort [Unknown]
  - Asthenia [Unknown]
  - Fistula [Unknown]
  - Frequent bowel movements [Unknown]
  - Dyschezia [Unknown]
  - Brain fog [Unknown]
  - Food intolerance [Unknown]
  - Drug effect less than expected [Unknown]
  - Abdominal pain [Unknown]
  - Decreased appetite [Unknown]
  - Abdominal distension [Unknown]
  - Cough [Unknown]
  - Pyrexia [Unknown]
  - Fatigue [Unknown]
  - Nausea [Unknown]

NARRATIVE: CASE EVENT DATE: 20220529
